FAERS Safety Report 7413273-8 (Version None)
Quarter: 2011Q2

REPORT INFORMATION
  Report Type: 
  Country: None (occurrence: None)
  Receive Date: 20110413
  Receipt Date: 20110408
  Transmission Date: 20111010
  Serious: Yes (Other)
  Sender: FDA-Public Use
  Company Number: HR-PFIZER INC-2011077644

PATIENT
  Age: 24 Year
  Sex: Female

DRUGS (2)
  1. LYRICA [Suspect]
     Indication: EPILEPSY
     Dosage: UNK
     Route: 048
     Dates: start: 20100101, end: 20110101
  2. LAMOTRIGINE [Suspect]
     Indication: EPILEPSY
     Dosage: 25 MG 8 TIMES DAILY
     Route: 048
     Dates: start: 20100101

REACTIONS (3)
  - LOSS OF CONSCIOUSNESS [None]
  - HEADACHE [None]
  - MYOCLONUS [None]
